FAERS Safety Report 19977096 (Version 1)
Quarter: 2021Q4

REPORT INFORMATION
  Report Type: Spontaneous
  Country: US (occurrence: US)
  Receive Date: 20211021
  Receipt Date: 20211021
  Transmission Date: 20220303
  Serious: No
  Sender: FDA-Public Use
  Company Number: US-AVET LIFESCIENCES LTD-2021-AVET-000036

PATIENT

DRUGS (19)
  1. FUROSEMIDE [Suspect]
     Active Substance: FUROSEMIDE
     Indication: Product used for unknown indication
     Dosage: UNK
  2. FUROSEMIDE [Suspect]
     Active Substance: FUROSEMIDE
     Dosage: 80 MILLIGRAM, DAILY
     Route: 048
  3. KORLYM [Interacting]
     Active Substance: MIFEPRISTONE
     Indication: Cushing^s syndrome
     Dosage: 600 MILLIGRAM, QD
     Route: 048
     Dates: start: 20210810
  4. XARELTO [Interacting]
     Active Substance: RIVAROXABAN
     Indication: Product used for unknown indication
     Dosage: 20 MILLIGRAM, QD
  5. XARELTO [Interacting]
     Active Substance: RIVAROXABAN
     Dosage: 15 UNK
     Route: 048
  6. BETAMETHASONE [Concomitant]
     Active Substance: BETAMETHASONE
  7. ESCITALOPRAM [Concomitant]
     Active Substance: ESCITALOPRAM OXALATE
  8. FARXIGA [Concomitant]
     Active Substance: DAPAGLIFLOZIN PROPANEDIOL
  9. HALOBETASOL PROPIONATE [Concomitant]
     Active Substance: HALOBETASOL PROPIONATE
  10. KETOCONAZOLE [Concomitant]
     Active Substance: KETOCONAZOLE
  11. LEVOTHYROXINE [Concomitant]
     Active Substance: LEVOTHYROXINE
  12. MINOCYCLINE [Concomitant]
     Active Substance: MINOCYCLINE HYDROCHLORIDE
  13. MUPIROCIN [Concomitant]
     Active Substance: MUPIROCIN
  14. OLMESARTAN [Concomitant]
     Active Substance: OLMESARTAN
  15. PROLIA [Concomitant]
     Active Substance: DENOSUMAB
  16. TRULICITY [Concomitant]
     Active Substance: DULAGLUTIDE
  17. VITAMIN D [Concomitant]
     Active Substance: VITAMIN D NOS
  18. AMLODIPINE [Concomitant]
     Active Substance: AMLODIPINE BESYLATE
  19. ATORVASTATIN [Concomitant]
     Active Substance: ATORVASTATIN

REACTIONS (6)
  - Swelling [Not Recovered/Not Resolved]
  - Urinary tract infection [Unknown]
  - Haematuria [Recovering/Resolving]
  - Accident [Unknown]
  - Nausea [Not Recovered/Not Resolved]
  - Drug interaction [Unknown]

NARRATIVE: CASE EVENT DATE: 20210101
